FAERS Safety Report 4349413-7 (Version None)
Quarter: 2004Q2

REPORT INFORMATION
  Report Type: 
  Country: None (occurrence: None)
  Receive Date: 20040426
  Receipt Date: 20040406
  Transmission Date: 20050107
  Serious: Yes (Other)
  Sender: FDA-Public Use
  Company Number: AT-JNJFOC-20040404005

PATIENT
  Age: 36 Year
  Sex: Female
  Weight: 58 kg

DRUGS (1)
  1. ORTHO EVRA [Suspect]
     Indication: CONTRACEPTION
     Dosage: 1 DOSE (S), 3 IN 4 WEEK, TRANSDERMAL
     Route: 062
     Dates: start: 20031211, end: 20031214

REACTIONS (6)
  - DEPRESSED MOOD [None]
  - DRUG ERUPTION [None]
  - EXANTHEM [None]
  - PAIN [None]
  - SLEEP DISORDER [None]
  - URTICARIA [None]
